FAERS Safety Report 8812137 (Version 1)
Quarter: 2012Q4

REPORT INFORMATION
  Report Type: Report from Study
  Country: ID (occurrence: ID)
  Receive Date: 20120927
  Receipt Date: 20120927
  Transmission Date: 20130627
  Serious: Yes (Hospitalization)
  Sender: FDA-Public Use
  Company Number: ID-ROCHE-1127911

PATIENT
  Age: 55 Year
  Sex: Male
  Weight: 68 kg

DRUGS (2)
  1. ROACTEMRA [Suspect]
     Indication: RHEUMATOID ARTHRITIS
     Route: 041
     Dates: start: 20120718
  2. ARAVA [Concomitant]
     Indication: RHEUMATOID ARTHRITIS
     Route: 048
     Dates: start: 2012

REACTIONS (3)
  - Pain [Not Recovered/Not Resolved]
  - Pyrexia [Recovering/Resolving]
  - Stomatitis [Recovering/Resolving]
